FAERS Safety Report 24961285 (Version 1)
Quarter: 2025Q1

REPORT INFORMATION
  Report Type: Spontaneous
  Country: US (occurrence: None)
  Receive Date: 20250211
  Receipt Date: 20250211
  Transmission Date: 20250409
  Serious: Yes (Other)
  Sender: FDA-CTU
  Company Number: None

PATIENT
  Age: 39 Year
  Sex: Female
  Weight: 54 kg

DRUGS (10)
  1. GONADOTROPIN, CHORIONIC [Suspect]
     Active Substance: CHORIOGONADOTROPIN ALFA
     Indication: In vitro fertilisation
     Dosage: OTHER STRENGTH : UNITS;?OTHER QUANTITY : 1 VIAL;?FREQUENCY : AT BEDTIME;?
     Route: 058
     Dates: start: 20241204, end: 20241214
  2. GONAL-F [Concomitant]
     Active Substance: FOLLITROPIN
  3. CEPHALEXIN [Concomitant]
     Active Substance: CEPHALEXIN
  4. DOXYCYCLINE [Concomitant]
     Active Substance: DOXYCYCLINE
  5. ASPIRIN [Concomitant]
     Active Substance: ASPIRIN
  6. VITAMINS [Concomitant]
     Active Substance: VITAMINS
  7. PROVERA [Concomitant]
     Active Substance: MEDROXYPROGESTERONE ACETATE
  8. LUPRON [Concomitant]
     Active Substance: LEUPROLIDE ACETATE
  9. NOVAREL [Concomitant]
     Active Substance: CHORIOGONADOTROPIN ALFA
  10. VITAMINS [Concomitant]
     Active Substance: VITAMINS

REACTIONS (8)
  - Lip swelling [None]
  - Dysphagia [None]
  - Urticaria [None]
  - Oesophageal oedema [None]
  - Muscle spasms [None]
  - Abdominal distension [None]
  - Headache [None]
  - Adverse food reaction [None]

NARRATIVE: CASE EVENT DATE: 20241204
